FAERS Safety Report 8972023 (Version 2)
Quarter: 2015Q4

REPORT INFORMATION
  Report Type: Report from Study
  Country: JP (occurrence: JP)
  Receive Date: 20121219
  Receipt Date: 20151221
  Transmission Date: 20160305
  Serious: Yes (Death, Life-Threatening)
  Sender: FDA-Public Use
  Company Number: JP-009507513-2006SP008895

PATIENT
  Age: 83 Year
  Sex: Male
  Weight: 41 kg

DRUGS (6)
  1. TEMODAL [Suspect]
     Active Substance: TEMOZOLOMIDE
     Indication: GLIOBLASTOMA MULTIFORME
     Dosage: 150 MG/M2, QD
     Route: 048
     Dates: start: 20060920, end: 20060924
  2. BFLUID [Concomitant]
     Active Substance: AMINO ACIDS\DEXTROSE\ELECTROLYTES NOS\VITAMINS
     Dosage: DAILY DOSE UNKNOWN, DRIP
     Route: 041
     Dates: start: 20061011, end: 20061102
  3. OMEPRAL [Concomitant]
     Active Substance: OMEPRAZOLE
     Dosage: DAILY DOSAGE UNKNOWN
     Dates: start: 20061103, end: 20061111
  4. MUCOSTA [Concomitant]
     Active Substance: REBAMIPIDE
     Dosage: DAILY DOSAGE UNKNOW, START DATE BEFORE 20-SEP-2006
     Route: 048
     Dates: end: 20061025
  5. PREDONINE [Concomitant]
     Active Substance: PREDNISOLONE\PREDNISOLONE ACETATE\PREDNISOLONE SODIUM SUCCINATE
     Dosage: DAILY DOSAGE UNKNOW, START DATE BEFORE 20-SEP-2006
     Route: 048
     Dates: end: 20061025
  6. GASTER [Concomitant]
     Active Substance: FAMOTIDINE
     Dosage: DAILY DOSAGE UNKNOW, START DATE BEFORE 20-SEP-2006
     Route: 048
     Dates: end: 20061025

REACTIONS (9)
  - Cystitis [Recovered/Resolved]
  - Lymphocyte count decreased [Fatal]
  - Pneumonia [Fatal]
  - Fungaemia [Recovering/Resolving]
  - Cystitis [Recovered/Resolved]
  - Hepatic function abnormal [Unknown]
  - Cystitis [Recovered/Resolved]
  - Eating disorder [Fatal]
  - Circulatory collapse [Fatal]

NARRATIVE: CASE EVENT DATE: 20061020
